FAERS Safety Report 4265772-8 (Version None)
Quarter: 2004Q1

REPORT INFORMATION
  Report Type: 
  Country: None (occurrence: None)
  Receive Date: 20040106
  Receipt Date: 20031222
  Transmission Date: 20041129
  Serious: Yes (Hospitalization)
  Sender: FDA-Public Use
  Company Number: US-JNJFOC-20031002764

PATIENT
  Age: 56 Year
  Sex: Female
  Weight: 86.1834 kg

DRUGS (23)
  1. REMICADE [Suspect]
     Indication: CROHN'S DISEASE
     Dosage: 5 MG/KG, INTRAVENOUS; INTRAVENOUS; INTRAVENOUS
     Route: 042
     Dates: start: 20020410, end: 20020410
  2. REMICADE [Suspect]
     Indication: CROHN'S DISEASE
     Dosage: 5 MG/KG, INTRAVENOUS; INTRAVENOUS; INTRAVENOUS
     Route: 042
     Dates: start: 20020709, end: 20020709
  3. REMICADE [Suspect]
     Indication: CROHN'S DISEASE
     Dosage: 5 MG/KG, INTRAVENOUS; INTRAVENOUS; INTRAVENOUS
     Route: 042
     Dates: start: 20020821, end: 20020821
  4. XANAX [Concomitant]
  5. ZYRTEC [Concomitant]
  6. NEURONTIN [Concomitant]
  7. REMERON [Concomitant]
  8. IMIPRAMINE [Concomitant]
  9. PURINETHOL [Concomitant]
  10. PLAVIX [Concomitant]
  11. ASACOL [Concomitant]
  12. VIOXX [Concomitant]
  13. FLOVENT [Concomitant]
  14. COMBIVENT [Concomitant]
  15. ALBUTEROL [Concomitant]
  16. ADVAIR (SERETIDE MITE) [Concomitant]
  17. ALPHAGEN (BRIMONIDINE TARTRATE) OPHTHALMIC [Concomitant]
  18. AMBIEN [Concomitant]
  19. VICODIN [Concomitant]
  20. LIPITOR [Concomitant]
  21. LEVAQUIN [Concomitant]
  22. ZOFRAN [Concomitant]
  23. ZELNORM [Concomitant]

REACTIONS (17)
  - ATAXIA [None]
  - BLOOD ALKALINE PHOSPHATASE INCREASED [None]
  - BRONCHITIS ACUTE [None]
  - CEREBROVASCULAR ACCIDENT [None]
  - COMA [None]
  - DIZZINESS [None]
  - DYSPHAGIA [None]
  - LACUNAR INFARCTION [None]
  - LOSS OF CONSCIOUSNESS [None]
  - OESOPHAGEAL DISORDER [None]
  - PAIN IN EXTREMITY [None]
  - PO2 DECREASED [None]
  - TRANSIENT ISCHAEMIC ATTACK [None]
  - VENOUS ANGIOMA OF BRAIN [None]
  - VERTIGO [None]
  - WALKING AID USER [None]
  - WHITE BLOOD CELL COUNT DECREASED [None]
